FAERS Safety Report 5400014-9 (Version None)
Quarter: 2007Q3

REPORT INFORMATION
  Report Type: 
  Country: None (occurrence: None)
  Receive Date: 20070726
  Receipt Date: 20070726
  Transmission Date: 20080115
  Serious: Yes (Hospitalization)
  Sender: FDA-Public Use
  Company Number: None

PATIENT
  Age: 92 Year
  Sex: Male

DRUGS (15)
  1. STALEVO 100 [Suspect]
     Dosage: 50 MG QID PO
     Route: 048
  2. ENALAPRIL MALEATE [Concomitant]
  3. AMBIEN [Concomitant]
  4. LEXAPRO [Concomitant]
  5. XANAX [Concomitant]
  6. FOLIC ACID [Concomitant]
  7. SEROQUEL [Concomitant]
  8. HALDOL [Concomitant]
  9. LORAZEPAM [Concomitant]
  10. DOXAZOSIN MESYLATE [Concomitant]
  11. LEVOTHYROXINE SODIUM [Concomitant]
  12. STALEVO 50 -CARBIDOPA [Concomitant]
  13. LEVODOPA [Concomitant]
  14. ENTACAPONE [Concomitant]
  15. COUMADIN [Concomitant]

REACTIONS (4)
  - HALLUCINATION, AUDITORY [None]
  - HALLUCINATION, VISUAL [None]
  - MENTAL STATUS CHANGES [None]
  - PARANOIA [None]
